FAERS Safety Report 15651626 (Version 1)
Quarter: 2018Q4

REPORT INFORMATION
  Report Type: Spontaneous
  Country: PT (occurrence: PT)
  Receive Date: 20181123
  Receipt Date: 20181123
  Transmission Date: 20190205
  Serious: Yes (Disabling)
  Sender: FDA-Public Use
  Company Number: PHHY2018PT162631

PATIENT
  Age: 41 Year
  Sex: Male

DRUGS (2)
  1. NIMESULIDE [Suspect]
     Active Substance: NIMESULIDE
     Indication: TONSILLITIS
     Dosage: 200 MG, QD
     Route: 048
     Dates: start: 20181031, end: 20181108
  2. AMOXICILLIN+CLAVULANATE SANDOZ [Suspect]
     Active Substance: AMOXICILLIN\CLAVULANATE POTASSIUM
     Indication: TONSILLITIS
     Dosage: 2000 MG, QD
     Route: 048
     Dates: start: 20181031, end: 20181108

REACTIONS (4)
  - Decreased appetite [Unknown]
  - Gastritis [Recovered/Resolved]
  - Abdominal discomfort [Recovered/Resolved]
  - Flatulence [Recovering/Resolving]

NARRATIVE: CASE EVENT DATE: 201811
